FAERS Safety Report 18505178 (Version 1)
Quarter: 2020Q4

REPORT INFORMATION
  Report Type: Spontaneous
  Country: JP (occurrence: JP)
  Receive Date: 20201116
  Receipt Date: 20201116
  Transmission Date: 20210114
  Serious: Yes (Other)
  Sender: FDA-Public Use
  Company Number: JP-LUPIN PHARMACEUTICALS INC.-2020-08695

PATIENT
  Age: 54 Year
  Sex: Male

DRUGS (3)
  1. FAVIPIRAVIR [Concomitant]
     Active Substance: FAVIPIRAVIR
     Indication: COVID-19
     Dosage: UNK (THERAPY STARTED ON DAY 5 OF COVID-19 SYMPTOM ONSET)
     Route: 048
  2. CICLESONIDE [Concomitant]
     Active Substance: CICLESONIDE
     Indication: COVID-19
     Dosage: UNK (THERAPY STARTED ON DAY 5 OF COVID-19 SYMPTOM ONSET)
  3. HYDROXYCHLOROQUINE [Suspect]
     Active Substance: HYDROXYCHLOROQUINE
     Indication: COVID-19
     Dosage: UNK (THERAPY STARTED ON DAY 5 OF COVID-19 SYMPTOM ONSET)
     Route: 048

REACTIONS (1)
  - Off label use [Unknown]
